FAERS Safety Report 22606370 (Version 2)
Quarter: 2023Q2

REPORT INFORMATION
  Report Type: Spontaneous
  Country: US (occurrence: US)
  Receive Date: 20230615
  Receipt Date: 20230628
  Transmission Date: 20230722
  Serious: Yes (Hospitalization, Other)
  Sender: FDA-Public Use
  Company Number: US-TEVA-2023-US-2895953

PATIENT
  Age: 6 Decade
  Sex: Female

DRUGS (1)
  1. GEMCITABINE [Suspect]
     Active Substance: GEMCITABINE
     Indication: Invasive ductal breast carcinoma
     Dosage: ADMINISTERED ON DAYS 1 AND 8 OF A 21-DAY CYCLE
     Route: 065

REACTIONS (2)
  - Ischaemia [Recovering/Resolving]
  - Dry gangrene [Recovering/Resolving]
